FAERS Safety Report 17231175 (Version 3)
Quarter: 2020Q1

REPORT INFORMATION
  Report Type: Spontaneous
  Country: US (occurrence: US)
  Receive Date: 20200103
  Receipt Date: 20200207
  Transmission Date: 20200409
  Serious: No
  Sender: FDA-Public Use
  Company Number: US-PFIZER INC-2019559920

PATIENT
  Age: 66 Year
  Sex: Female
  Weight: 45.36 kg

DRUGS (1)
  1. CLINDAMYCIN PHOSPHATE. [Suspect]
     Active Substance: CLINDAMYCIN PHOSPHATE
     Indication: FOLLICULITIS
     Dosage: UNK, 1X/DAY (1% APPLYING TO GROIN AREA NIGHTLY FOR 14 DAYS)
     Dates: start: 20191113, end: 20191126

REACTIONS (10)
  - Diarrhoea [Recovered/Resolved with Sequelae]
  - Insomnia [Unknown]
  - Condition aggravated [Unknown]
  - Burning sensation [Not Recovered/Not Resolved]
  - Vulvovaginal burning sensation [Unknown]
  - Off label use [Unknown]
  - Skin disorder [Unknown]
  - Nasal congestion [Unknown]
  - Dyspnoea [Not Recovered/Not Resolved]
  - Drug ineffective for unapproved indication [Unknown]

NARRATIVE: CASE EVENT DATE: 201911
